FAERS Safety Report 20815151 (Version 1)
Quarter: 2022Q2

REPORT INFORMATION
  Report Type: Spontaneous
  Country: FR (occurrence: FR)
  Receive Date: 20220511
  Receipt Date: 20220511
  Transmission Date: 20220721
  Serious: Yes (Other)
  Sender: FDA-Public Use
  Company Number: None

PATIENT
  Sex: Male

DRUGS (4)
  1. ELIQUIS [Suspect]
     Active Substance: APIXABAN
     Indication: Thrombosis prophylaxis
     Dosage: ()
     Dates: start: 2015
  2. PACLITAXEL [Suspect]
     Active Substance: PACLITAXEL
     Indication: Neoplasm malignant
  3. PACLITAXEL [Suspect]
     Active Substance: PACLITAXEL
     Dosage: ()
  4. GENTAMICIN [Suspect]
     Active Substance: GENTAMICIN
     Indication: Neoplasm malignant
     Dosage: ()

REACTIONS (1)
  - Thrombocytopenia [Not Recovered/Not Resolved]
